FAERS Safety Report 14636687 (Version 2)
Quarter: 2018Q3

REPORT INFORMATION
  Report Type: Report from Study
  Country: CA (occurrence: CA)
  Receive Date: 20180314
  Receipt Date: 20180817
  Transmission Date: 20181010
  Serious: Yes (Death, Life-Threatening, Hospitalization, Disabling)
  Sender: FDA-Public Use
  Company Number: CA-HLSUS-2018-CA-000404

PATIENT
  Age: 45 Year
  Sex: Male
  Weight: 58 kg

DRUGS (1)
  1. CLOZAPINE. [Suspect]
     Active Substance: CLOZAPINE
     Indication: PRODUCT USED FOR UNKNOWN INDICATION
     Dosage: 125MG OD

REACTIONS (3)
  - Therapy cessation [Fatal]
  - Unresponsive to stimuli [Fatal]
  - Overdose [Fatal]
